FAERS Safety Report 4343881-2 (Version None)
Quarter: 2004Q2

REPORT INFORMATION
  Report Type: 
  Country: None (occurrence: None)
  Receive Date: 20040421
  Receipt Date: 20040421
  Transmission Date: 20050107
  Serious: Yes (Hospitalization)
  Sender: FDA-Public Use
  Company Number: None

PATIENT
  Age: 82 Year
  Sex: Female
  Weight: 52.1 kg

DRUGS (7)
  1. ASPIRIN [Suspect]
     Dosage: 81 MG PO QD
     Route: 048
  2. PLAVIX [Suspect]
     Dosage: 75 MG PO QD
     Route: 048
  3. CARDIZEM CD [Concomitant]
  4. FLORINEF [Concomitant]
  5. SYNTHROID [Concomitant]
  6. MUTIVIT [Concomitant]
  7. ENULOSE [Concomitant]

REACTIONS (3)
  - DIVERTICULUM INTESTINAL HAEMORRHAGIC [None]
  - FAECES DISCOLOURED [None]
  - GASTRITIS [None]
